FAERS Safety Report 24762003 (Version 1)
Quarter: 2024Q4

REPORT INFORMATION
  Report Type: Spontaneous
  Country: US (occurrence: US)
  Receive Date: 20241221
  Receipt Date: 20241221
  Transmission Date: 20250115
  Serious: No
  Sender: SANOFI AVENTIS
  Company Number: US-SA-2024SA375462

PATIENT
  Sex: Female
  Weight: 79.55 kg

DRUGS (25)
  1. DUPIXENT [Suspect]
     Active Substance: DUPILUMAB
     Indication: Eosinophilic oesophagitis
     Dosage: 300 MG, QW
     Route: 058
  2. ENBREL [Suspect]
     Active Substance: ETANERCEPT
  3. PREDNISONE [Concomitant]
     Active Substance: PREDNISONE
  4. PULMICORT TURBUHALER [Concomitant]
     Active Substance: BUDESONIDE
  5. PATADAY ONCE DAILY RELIEF [Concomitant]
     Active Substance: OLOPATADINE HYDROCHLORIDE
  6. NORTRIPTYLINE HYDROCHLORIDE [Concomitant]
     Active Substance: NORTRIPTYLINE HYDROCHLORIDE
  7. TRULICITY [Concomitant]
     Active Substance: DULAGLUTIDE
  8. TRAZODONE HCL [Concomitant]
     Active Substance: TRAZODONE HYDROCHLORIDE
  9. ARMOUR THYROID [Concomitant]
     Active Substance: THYROID, PORCINE
  10. RESTASIS [Concomitant]
     Active Substance: CYCLOSPORINE
  11. MONTELUKAST SODIUM [Concomitant]
     Active Substance: MONTELUKAST\MONTELUKAST SODIUM
  12. METFORMIN HYDROCHLORIDE [Concomitant]
     Active Substance: METFORMIN HYDROCHLORIDE
  13. LEFLUNOMIDE [Concomitant]
     Active Substance: LEFLUNOMIDE
  14. LAMICTAL [Concomitant]
     Active Substance: LAMOTRIGINE
  15. IRON [Concomitant]
     Active Substance: IRON
  16. ESTRING [Concomitant]
     Active Substance: ESTRADIOL
     Dosage: 7.500UG QD
  17. DIETARY SUPPLEMENT [Concomitant]
     Active Substance: DIETARY SUPPLEMENT
  18. CYCLOBENZAPRINE HYDROCHLORIDE [Concomitant]
     Active Substance: CYCLOBENZAPRINE HYDROCHLORIDE
  19. CLONAZEPAM [Concomitant]
     Active Substance: CLONAZEPAM
  20. CLINDAMYCIN HYDROCHLORIDE [Concomitant]
     Active Substance: CLINDAMYCIN HYDROCHLORIDE
  21. CELEBREX [Concomitant]
     Active Substance: CELECOXIB
  22. CALCIUM 600 + D3 PLUS MINERALS [Concomitant]
  23. VITAMINS NOS [Concomitant]
     Active Substance: VITAMINS
  24. ASPIRIN [Concomitant]
     Active Substance: ASPIRIN
  25. AMLODIPINE BESYLATE [Concomitant]
     Active Substance: AMLODIPINE BESYLATE

REACTIONS (1)
  - Arthritis [Unknown]
